FAERS Safety Report 7986793 (Version 2)
Quarter: 2012Q4

REPORT INFORMATION
  Report Type: Report from Study
  Country: US (occurrence: US)
  Receive Date: 20110613
  Receipt Date: 20120912
  Transmission Date: 20130627
  Serious: Yes (Death, Hospitalization)
  Sender: FDA-Public Use
  Company Number: US-BRISTOL-MYERS SQUIBB COMPANY-15823032

PATIENT
  Age: 42 Year
  Sex: Male
  Weight: 81 kg

DRUGS (21)
  1. CETUXIMAB [Suspect]
     Indication: HEAD AND NECK CANCER
     Dosage: Recent dose:31May11.
No of Inf:7
     Route: 042
     Dates: start: 20110425, end: 20110531
  2. CARBOPLATIN [Suspect]
     Indication: HEAD AND NECK CANCER
     Dosage: Recent dose:17May11.
No of Inf:2
     Route: 042
     Dates: start: 20110425, end: 20110517
  3. 5-FLUOROURACIL [Suspect]
     Indication: HEAD AND NECK CANCER
     Dosage: Recent dose:21May11.
No of Inf:8
     Route: 042
     Dates: start: 20110425, end: 20110521
  4. CEPHALEXIN [Concomitant]
     Indication: INFECTION
     Dosage: Per 5ml 250mg,2tspn,2x day for 7 days
     Route: 048
     Dates: start: 20110516
  5. DEXAMETHASONE [Concomitant]
     Indication: NAUSEA
     Dosage: 4mg 2 tabs,2x/D for 3D
     Route: 048
     Dates: start: 20110516
  6. FENTANYL [Concomitant]
     Dosage: 8.3333 mcg (25 mcg,1 in 72 hr)
16.6667 mcg (50 mcg,1 in 72 hr)
     Route: 062
     Dates: start: 20110516
  7. VICODIN [Concomitant]
     Indication: PAIN
     Dosage: 1DF:10mg/325mg,take 2 tabs /6 hrs
     Route: 048
     Dates: start: 20110516
  8. MAGNESIUM HYDROXIDE [Concomitant]
     Indication: CONSTIPATION
     Dosage: 1DF:405mg,2 tspn, via PEG
     Route: 048
     Dates: start: 20110516
  9. METOCLOPRAMIDE HCL [Concomitant]
     Indication: HICCUPS
     Route: 048
     Dates: start: 20110516
  10. ENSURE [Concomitant]
     Indication: MEDICAL DIET
     Dosage: 1DF:5 cans/D via PEG
     Route: 048
     Dates: start: 20110516
  11. BENZYL ALCOHOL [Concomitant]
     Indication: MEDICAL DIET
     Dosage: 1DF:2 tblspn/D via PEG
     Route: 048
     Dates: start: 20110516
  12. OMEPRAZOLE [Concomitant]
     Indication: GASTRIC ULCER
     Route: 048
     Dates: start: 20110516
  13. OMEPRAZOLE [Concomitant]
     Indication: GASTROOESOPHAGEAL REFLUX DISEASE
     Route: 048
     Dates: start: 20110516
  14. ONDANSETRON [Concomitant]
     Indication: NAUSEA
     Dosage: 1 tab at 8 hrs
     Route: 048
  15. ONDANSETRON [Concomitant]
     Indication: VOMITING
     Dosage: 1 tab at 8 hrs
     Route: 048
  16. POTASSIUM CHLORIDE [Concomitant]
     Indication: BLOOD POTASSIUM DECREASED
     Dosage: per 15ml(40 mEq,1 tblspn/D for 14D)
     Route: 048
     Dates: start: 20110502
  17. PROCHLORPERAZINE MALEATE [Concomitant]
     Indication: NAUSEA
     Dosage: 1DF:10mg,1 tab,2x/D
     Route: 048
     Dates: start: 20110516
  18. PROCHLORPERAZINE MALEATE [Concomitant]
     Indication: VOMITING
     Dosage: 1DF:10mg,1 tab,2x/D
     Route: 048
     Dates: start: 20110516
  19. SENNOSIDE [Concomitant]
     Indication: CONSTIPATION
     Dosage: 1DF:8.8mg,2 tspn,2/D via PEG tube
     Route: 048
     Dates: start: 20110516
  20. AMBIEN [Concomitant]
     Indication: INSOMNIA
     Route: 048
     Dates: start: 20110516
  21. DOCUSATE [Concomitant]

REACTIONS (1)
  - Septic shock [Fatal]
